FAERS Safety Report 9467727 (Version 1)
Quarter: 2013Q3

REPORT INFORMATION
  Report Type: Spontaneous
  Country: US (occurrence: None)
  Receive Date: 20130819
  Receipt Date: 20130819
  Transmission Date: 20140515
  Serious: Yes (Other)
  Sender: FDA-Public Use
  Company Number: None

PATIENT
  Age: 33 Year
  Sex: Female
  Weight: 77.11 kg

DRUGS (1)
  1. PRISTIQ [Suspect]
     Indication: ANXIETY
     Route: 048

REACTIONS (5)
  - Fatigue [None]
  - Headache [None]
  - Depression [None]
  - Pain [None]
  - Somnolence [None]
